FAERS Safety Report 11810430 (Version 1)
Quarter: 2015Q4

REPORT INFORMATION
  Report Type: Spontaneous
  Country: US (occurrence: US)
  Receive Date: 20151208
  Receipt Date: 20151208
  Transmission Date: 20160305
  Serious: No
  Sender: FDA-Public Use
  Company Number: US-BAYER-2015-483882

PATIENT
  Age: 68 Year
  Sex: Female
  Weight: 91.61 kg

DRUGS (2)
  1. METFORMIN [Concomitant]
     Active Substance: METFORMIN HYDROCHLORIDE
     Dosage: UNK
  2. MIRALAX [Suspect]
     Active Substance: POLYETHYLENE GLYCOL 3350
     Dosage: 1 DF, 3-4 DAYS IN A WEEKS
     Route: 048
     Dates: start: 201507

REACTIONS (1)
  - Product use issue [None]

NARRATIVE: CASE EVENT DATE: 201507
